FAERS Safety Report 8240661-2 (Version None)
Quarter: 2012Q1

REPORT INFORMATION
  Report Type: 
  Country: None (occurrence: None)
  Receive Date: 20120314
  Receipt Date: 20120125
  Transmission Date: 20120608
  Serious: Yes (Other)
  Sender: FDA-Public Use
  Company Number: PHHY2010US68431

PATIENT
  Age: 43 Year
  Sex: Female

DRUGS (17)
  1. MECLIZINE [Concomitant]
  2. TRAMADOL HCL [Concomitant]
  3. SYNTHROID [Concomitant]
  4. SINGULAIR [Concomitant]
  5. EXTAVIA [Suspect]
     Indication: RELAPSING-REMITTING MULTIPLE SCLEROSIS
     Dosage: 0.3 MG, QOD, SUBCUTANEOUS
     Route: 058
     Dates: start: 20100901, end: 20120124
  6. TOPROL-XL [Concomitant]
  7. CALCIUM CARBONATE [Concomitant]
  8. ALBUTEROL [Concomitant]
  9. LORTAB [Concomitant]
  10. ZETIA [Concomitant]
  11. EFFEXOR [Concomitant]
  12. VITAMIN B12 [Concomitant]
  13. MULTIVITAMINS (ASCORBIC ACID, ERGOCALCIFEROL, FOLIC ACID, NICOTINAMIDE [Concomitant]
  14. ZYRTEC [Concomitant]
  15. STEROID (NO INGREDIENTS/SUBSTANCES) [Concomitant]
  16. NALTREXONE HYDROCHLORIDE [Concomitant]
  17. VITAMIN D [Concomitant]

REACTIONS (9)
  - INJECTION SITE VESICLES [None]
  - INJECTION SITE REACTION [None]
  - DRUG EFFECT DECREASED [None]
  - NEUROLOGICAL DECOMPENSATION [None]
  - MULTIPLE SCLEROSIS RELAPSE [None]
  - GAIT DISTURBANCE [None]
  - INJECTION SITE ERYTHEMA [None]
  - INJECTION SITE SWELLING [None]
  - INJECTION SITE DISCOLOURATION [None]
